FAERS Safety Report 12384244 (Version 1)
Quarter: 2016Q2

REPORT INFORMATION
  Report Type: Spontaneous
  Country: AU (occurrence: AU)
  Receive Date: 20160519
  Receipt Date: 20160519
  Transmission Date: 20160815
  Serious: Yes (Other)
  Sender: FDA-Public Use
  Company Number: AU-009507513-1605AUS004695

PATIENT
  Sex: Female

DRUGS (5)
  1. PROVERA [Interacting]
     Active Substance: MEDROXYPROGESTERONE ACETATE
     Dosage: UNK
  2. PROVERA [Interacting]
     Active Substance: MEDROXYPROGESTERONE ACETATE
     Dosage: UNK
     Dates: start: 2004
  3. CIPRAMIL [Interacting]
     Active Substance: CITALOPRAM HYDROBROMIDE
  4. IRON (UNSPECIFIED) [Suspect]
     Active Substance: IRON
     Dosage: UNK
  5. AVANZA [Suspect]
     Active Substance: MIRTAZAPINE
     Dosage: UNK
     Route: 048

REACTIONS (11)
  - Irritability [Unknown]
  - Injection site bruising [Unknown]
  - Pain in extremity [Unknown]
  - Depression suicidal [Unknown]
  - Premenstrual syndrome [Unknown]
  - Drug interaction [Unknown]
  - Anaemia [Unknown]
  - Varicose vein [Unknown]
  - Menorrhagia [Unknown]
  - Syncope [Unknown]
  - Mental disorder [Unknown]
